FAERS Safety Report 7339004-8 (Version None)
Quarter: 2011Q1

REPORT INFORMATION
  Report Type: 
  Country: None (occurrence: None)
  Receive Date: 20110308
  Receipt Date: 20110304
  Transmission Date: 20110831
  Serious: Yes (Other)
  Sender: FDA-Public Use
  Company Number: US-PERRIGO-11US000765

PATIENT
  Sex: Female
  Weight: 47.619 kg

DRUGS (3)
  1. IBUPROFEN [Suspect]
     Indication: HEADACHE
     Dosage: 400 MG, SINGLE
     Route: 048
     Dates: start: 20101223, end: 20101223
  2. IBUPROFEN [Suspect]
     Indication: MUSCLE SPASMS
  3. ALBUTEROL [Concomitant]
     Indication: ASTHMA
     Dosage: 2 PUFFS, PRN
     Route: 055
     Dates: start: 20070101

REACTIONS (4)
  - OBSTRUCTIVE AIRWAYS DISORDER [None]
  - SWELLING FACE [None]
  - SWOLLEN TONGUE [None]
  - HYPERSENSITIVITY [None]
